FAERS Safety Report 9325024 (Version 2)
Quarter: 2013Q2

REPORT INFORMATION
  Report Type: Report from Study
  Country: GB (occurrence: GB)
  Receive Date: 20130603
  Receipt Date: 20130610
  Transmission Date: 20140414
  Serious: Yes (Hospitalization)
  Sender: FDA-Public Use
  Company Number: GB-ASTRAZENECA-2013SE37176

PATIENT
  Age: 51 Year
  Sex: Female
  Weight: 65.6 kg

DRUGS (1)
  1. VANDETANIB [Suspect]
     Indication: METASTATIC MALIGNANT MELANOMA
     Route: 048
     Dates: start: 20130424, end: 20130502

REACTIONS (1)
  - Confusional state [Recovered/Resolved]
